FAERS Safety Report 4392202-8 (Version None)
Quarter: 2004Q3

REPORT INFORMATION
  Report Type: 
  Country: None (occurrence: None)
  Receive Date: 20040702
  Receipt Date: 20040304
  Transmission Date: 20050211
  Serious: Yes (Other)
  Sender: FDA-Public Use
  Company Number: 2004UW02340

PATIENT
  Age: 65 Year
  Sex: Female
  Weight: 54.4316 kg

DRUGS (8)
  1. CRESTOR [Suspect]
     Indication: BLOOD CHOLESTEROL INCREASED
     Dosage: 10 MG PO
     Route: 048
  2. NEURONTIN [Concomitant]
  3. K-LOR [Concomitant]
  4. TRAZODONE HCL [Concomitant]
  5. LEVOXYL [Concomitant]
  6. VIOXX [Concomitant]
  7. QUININE SULFATE [Concomitant]
  8. ACCUPRIL [Concomitant]

REACTIONS (1)
  - ALOPECIA [None]
